FAERS Safety Report 6253697-8 (Version None)
Quarter: 2009Q2

REPORT INFORMATION
  Report Type: 
  Country: None (occurrence: None)
  Receive Date: 20090630
  Receipt Date: 20090617
  Transmission Date: 20091009
  Serious: Yes (Other)
  Sender: FDA-Public Use
  Company Number: 236770K09USA

PATIENT
  Age: 37 Year
  Sex: Female
  Weight: 117 kg

DRUGS (1)
  1. REBIF [Suspect]
     Indication: MULTIPLE SCLEROSIS
     Dosage: 44 MCG, 3 IN 1 WEEKS, SUBCUTANEOUS
     Route: 058
     Dates: start: 20090507

REACTIONS (3)
  - DIABETES MELLITUS [None]
  - HEPATIC ENZYME INCREASED [None]
  - PYREXIA [None]
